FAERS Safety Report 19922822 (Version 1)
Quarter: 2021Q4

REPORT INFORMATION
  Report Type: Spontaneous
  Country: US (occurrence: US)
  Receive Date: 20211005
  Receipt Date: 20211005
  Transmission Date: 20220303
  Serious: No
  Sender: FDA-Public Use
  Company Number: US-AVEO ONCOLOGY-2021-AVEO-US003480

PATIENT

DRUGS (20)
  1. FOTIVDA [Suspect]
     Active Substance: TIVOZANIB HYDROCHLORIDE
     Indication: Renal cell carcinoma
     Dosage: 1.34 MG, DAILY FOR 21 DAYS THEN 7 DAYS OFF
     Dates: start: 20210610
  2. ABIRATERONE ACETATE [Concomitant]
     Active Substance: ABIRATERONE ACETATE
  3. ADVIL DUAL ACTION WITH ACETAMINOPHEN [Concomitant]
     Active Substance: ACETAMINOPHEN\IBUPROFEN
  4. ARNICARE [Concomitant]
     Active Substance: HOMEOPATHICS
  5. CIALIS [Concomitant]
     Active Substance: TADALAFIL
  6. CYCLOBENZAPRINE [Concomitant]
     Active Substance: CYCLOBENZAPRINE
  7. DEXAMETHASONE [Concomitant]
     Active Substance: DEXAMETHASONE
  8. Essiac [Concomitant]
  9. GARLIC OIL [Concomitant]
     Active Substance: GARLIC OIL
  10. GINGER [Concomitant]
     Active Substance: GINGER
  11. DIETARY SUPPLEMENT\GRAPE SEED EXTRACT [Concomitant]
     Active Substance: DIETARY SUPPLEMENT\GRAPE SEED EXTRACT
  12. IRON [Concomitant]
     Active Substance: IRON
  13. LEUKINE [Concomitant]
     Active Substance: SARGRAMOSTIM
  14. MELATONIN [Concomitant]
     Active Substance: MELATONIN
  15. OXYCODONE [Concomitant]
     Active Substance: OXYCODONE
  16. VITAMIN D3 [Concomitant]
     Active Substance: CHOLECALCIFEROL
  17. IODINE [Concomitant]
     Active Substance: IODINE
  18. FIRMAGON [Concomitant]
     Active Substance: DEGARELIX ACETATE
  19. Noxylane4 [Concomitant]
  20. Eggplant extract [Concomitant]

REACTIONS (2)
  - Fatigue [Unknown]
  - Product use in unapproved indication [Unknown]
